FAERS Safety Report 23970019 (Version 1)
Quarter: 2024Q2

REPORT INFORMATION
  Report Type: Spontaneous
  Country: JP (occurrence: JP)
  Receive Date: 20240613
  Receipt Date: 20240613
  Transmission Date: 20240715
  Serious: Yes (Hospitalization)
  Sender: FDA-Public Use
  Company Number: JP-Merck Healthcare KGaA-2024031011

PATIENT
  Age: 82 Year
  Sex: Female
  Weight: 51 kg

DRUGS (7)
  1. METGLUCO [Suspect]
     Active Substance: METFORMIN HYDROCHLORIDE
     Indication: Type 2 diabetes mellitus
     Dosage: START DATE : 10-OCT (YEAR NOT REPORTED),
     Route: 048
  2. METGLUCO [Suspect]
     Active Substance: METFORMIN HYDROCHLORIDE
     Dosage: START DATE : 16-OCT (YEAR NOT REPORTED),
     Route: 048
  3. METGLUCO [Suspect]
     Active Substance: METFORMIN HYDROCHLORIDE
     Dosage: START DATE : 26-OCT (YEAR NOT REPORTED),
     Route: 048
  4. HUMALOG [Concomitant]
     Active Substance: INSULIN LISPRO
     Indication: Type 2 diabetes mellitus
     Dosage: 6-6-6?28-SEP (YEAR NOT REPORTED)
  5. HUMALOG [Concomitant]
     Active Substance: INSULIN LISPRO
     Dosage: 8-8-8?05-OCT (YEAR NOT REPORTED)
  6. HUMALOG [Concomitant]
     Active Substance: INSULIN LISPRO
     Dosage: 6-6-6?19-OCT (YEAR NOT REPORTED)
  7. PIOGLITAZONE [Concomitant]
     Active Substance: PIOGLITAZONE
     Indication: Type 2 diabetes mellitus
     Dosage: 30-OCT (YEAR NOT REPORTED)

REACTIONS (4)
  - Cerebral infarction [Unknown]
  - Constipation [Unknown]
  - Blood glucose increased [Unknown]
  - Off label use [Unknown]
